FAERS Safety Report 9016250 (Version 1)
Quarter: 2013Q1

REPORT INFORMATION
  Report Type: Spontaneous
  Country: US (occurrence: US)
  Receive Date: 20130116
  Receipt Date: 20130116
  Transmission Date: 20140127
  Serious: Yes (Hospitalization)
  Sender: FDA-Public Use
  Company Number: US-B.I. PHARMACEUTICALS,INC./RIDGEFIELD-2013-BI-00795BP

PATIENT
  Age: 50 None
  Sex: Female
  Weight: 54 kg

DRUGS (10)
  1. SPIRIVA [Suspect]
     Indication: LUNG DISORDER
     Dosage: 18 MCG
     Route: 055
  2. CLONAZEPAM [Concomitant]
     Indication: ANXIETY
     Dosage: 3 MG
     Route: 048
     Dates: start: 2010
  3. ADVAIR [Concomitant]
     Indication: LUNG DISORDER
     Route: 055
     Dates: start: 2005
  4. METHADONE [Concomitant]
     Indication: PAIN
     Route: 048
     Dates: start: 201206
  5. VENTOLIN [Concomitant]
     Indication: LUNG DISORDER
     Route: 055
     Dates: start: 201301
  6. SYMBICORT [Concomitant]
     Indication: LUNG DISORDER
     Dosage: 4 PUF
     Route: 055
     Dates: start: 201301
  7. LISINOPRIL [Concomitant]
     Indication: HYPERTENSION
     Dosage: 10 MG
     Route: 048
     Dates: start: 2010
  8. PROTONIX [Concomitant]
     Indication: GASTROOESOPHAGEAL REFLUX DISEASE
     Dosage: 40 MG
     Route: 048
     Dates: start: 20130108
  9. RANITIDINE [Concomitant]
     Indication: GASTROOESOPHAGEAL REFLUX DISEASE
     Dosage: 75 MG
     Route: 048
     Dates: start: 201301
  10. LEXAPRO [Concomitant]
     Indication: DEPRESSION
     Dosage: 10 MG
     Route: 048
     Dates: start: 20130108

REACTIONS (2)
  - Influenza [Recovered/Resolved]
  - Oesophageal oedema [Not Recovered/Not Resolved]
